FAERS Safety Report 11251645 (Version 1)
Quarter: 2015Q3

REPORT INFORMATION
  Report Type: Spontaneous
  Country: US (occurrence: US)
  Receive Date: 20150708
  Receipt Date: 20150708
  Transmission Date: 20151125
  Serious: No
  Sender: FDA-Public Use
  Company Number: US-ELI_LILLY_AND_COMPANY-US201204009898

PATIENT
  Sex: Female

DRUGS (2)
  1. DECADRON [Concomitant]
     Active Substance: DEXAMETHASONE
  2. ALIMTA [Suspect]
     Active Substance: PEMETREXED DISODIUM
     Dosage: 500 MG/M2, EVERY 21 DAYS

REACTIONS (1)
  - Extravasation [Unknown]
